FAERS Safety Report 25681585 (Version 2)
Quarter: 2025Q3

REPORT INFORMATION
  Report Type: Spontaneous
  Country: GB (occurrence: GB)
  Receive Date: 20250814
  Receipt Date: 20250909
  Transmission Date: 20251020
  Serious: Yes (Other)
  Sender: ABBVIE
  Company Number: GB-ABBVIE-6414524

PATIENT
  Age: 14 Year
  Sex: Female
  Weight: 50.3 kg

DRUGS (2)
  1. MAVYRET [Suspect]
     Active Substance: GLECAPREVIR\PIBRENTASVIR
     Indication: Chronic hepatitis C
     Route: 048
     Dates: start: 20250806, end: 20250810
  2. CETIRIZINE [Concomitant]
     Active Substance: CETIRIZINE HYDROCHLORIDE
     Indication: Product used for unknown indication
     Dates: start: 20250809, end: 20250809

REACTIONS (4)
  - Suicidal ideation [Recovered/Resolved]
  - Hallucination [Recovered/Resolved]
  - Polymenorrhoea [Recovering/Resolving]
  - Heavy menstrual bleeding [Recovering/Resolving]

NARRATIVE: CASE EVENT DATE: 20250808
